FAERS Safety Report 8201194-2 (Version None)
Quarter: 2012Q1

REPORT INFORMATION
  Report Type: 
  Country: None (occurrence: None)
  Receive Date: 20120312
  Receipt Date: 20120302
  Transmission Date: 20120608
  Serious: Yes (Hospitalization)
  Sender: FDA-Public Use
  Company Number: PHFR2012IE001501

PATIENT
  Sex: Male

DRUGS (2)
  1. CLOZARIL [Suspect]
     Dosage: 250 MG, DAILY
  2. CLOZARIL [Suspect]
     Indication: SCHIZOPHRENIA
     Dates: start: 20070521

REACTIONS (4)
  - BILIARY CYST [None]
  - LIVER FUNCTION TEST ABNORMAL [None]
  - BILIARY ABSCESS [None]
  - GALLBLADDER DISORDER [None]
